FAERS Safety Report 9678953 (Version 1)
Quarter: 2013Q4

REPORT INFORMATION
  Report Type: Spontaneous
  Country: US (occurrence: None)
  Receive Date: 20131107
  Receipt Date: 20131107
  Transmission Date: 20140711
  Serious: Yes (Life-Threatening, Hospitalization)
  Sender: FDA-Public Use
  Company Number: 9039997-2013-0080

PATIENT
  Age: 70 Year
  Sex: Male

DRUGS (7)
  1. LEVULAN KERASTICK [Suspect]
     Indication: ACTINIC KERATOSIS
     Route: 061
     Dates: start: 20131016
  2. HYDROCHLOROTHIAZIDE [Concomitant]
  3. QUINAPRIL [Concomitant]
  4. ASA [Concomitant]
  5. GLUCOSAMINE [Concomitant]
  6. GINKO BILOBA [Concomitant]
  7. PRIVIGEN [Concomitant]

REACTIONS (1)
  - Convulsion [None]
